FAERS Safety Report 4512911-7 (Version None)
Quarter: 2004Q4

REPORT INFORMATION
  Report Type: 
  Country: None (occurrence: None)
  Receive Date: 20041130
  Receipt Date: 20040714
  Transmission Date: 20050328
  Serious: Yes (Death, Other)
  Sender: FDA-Public Use
  Company Number: 200412169EU

PATIENT
  Age: 68 Year
  Sex: Male

DRUGS (6)
  1. ARAVA [Suspect]
     Indication: ARTHROPATHY
     Route: 048
     Dates: start: 20040407, end: 20040519
  2. ARAVA [Suspect]
     Indication: PSORIASIS
     Route: 048
     Dates: start: 20040407, end: 20040519
  3. PREDNISONE [Concomitant]
     Indication: ARTHROPATHY
     Dates: start: 20030101, end: 20040519
  4. NISOLDIPINE [Concomitant]
     Indication: CARDIOMYOPATHY
     Dates: start: 20030101, end: 20040519
  5. TICLOPIDINE HCL [Concomitant]
     Indication: CARDIOMYOPATHY
     Dates: start: 20030101, end: 20040519
  6. ACEBUTOLOL [Concomitant]
     Indication: CARDIOMYOPATHY
     Dates: start: 20030101, end: 20040519

REACTIONS (34)
  - AGE INDETERMINATE MYOCARDIAL INFARCTION [None]
  - ANTITHROMBIN III DECREASED [None]
  - ARTHRALGIA [None]
  - ASCITES [None]
  - ASPERGILLOSIS [None]
  - ATHEROSCLEROSIS [None]
  - BILE DUCT STENOSIS [None]
  - BLOOD CULTURE POSITIVE [None]
  - BRONCHOPNEUMONIA [None]
  - CHLAMYDIAL INFECTION [None]
  - CHOLELITHIASIS [None]
  - CIRCULATORY COLLAPSE [None]
  - CORONARY ARTERY STENOSIS [None]
  - EMPHYSEMA [None]
  - HAEMODIALYSIS [None]
  - HEPATIC FAILURE [None]
  - JAUNDICE CHOLESTATIC [None]
  - LEPTOSPIROSIS [None]
  - LEUKOPENIA [None]
  - MYALGIA [None]
  - MYOCARDIAL CALCIFICATION [None]
  - OEDEMA PERIPHERAL [None]
  - PLEURAL EFFUSION [None]
  - PSEUDOMONAS INFECTION [None]
  - PULMONARY HAEMORRHAGE [None]
  - PULMONARY OEDEMA [None]
  - RENAL FAILURE ACUTE [None]
  - RENAL INTERSTITIAL FIBROSIS [None]
  - SCAR [None]
  - SEPTIC SHOCK [None]
  - STREPTOCOCCAL INFECTION [None]
  - THERAPEUTIC AGENT TOXICITY [None]
  - THROMBOCYTOPENIA [None]
  - VENTRICULAR HYPERTROPHY [None]
